FAERS Safety Report 5914342-1 (Version None)
Quarter: 2008Q4

REPORT INFORMATION
  Report Type: 
  Country: None (occurrence: None)
  Receive Date: 20081009
  Receipt Date: 20081001
  Transmission Date: 20090506
  Serious: Yes (Death)
  Sender: FDA-Public Use
  Company Number: US-PFIZER INC-2008082924

PATIENT
  Sex: Female

DRUGS (1)
  1. LIPITOR [Suspect]

REACTIONS (1)
  - AMYOTROPHIC LATERAL SCLEROSIS [None]
